FAERS Safety Report 7620234-2 (Version None)
Quarter: 2011Q3

REPORT INFORMATION
  Report Type: 
  Country: None (occurrence: None)
  Receive Date: 20110719
  Receipt Date: 20110706
  Transmission Date: 20111222
  Serious: Yes (Hospitalization, Other)
  Sender: FDA-Public Use
  Company Number: PHFR2011GB00447

PATIENT
  Sex: Male

DRUGS (7)
  1. CLOZAPINE [Suspect]
     Dosage: 500 MG, QD
     Route: 048
  2. METHADONE HCL [Concomitant]
     Indication: DEPENDENCE
     Dosage: 120 ML/DAY
     Route: 048
  3. METFORMIN HCL [Concomitant]
  4. SIMVASTATIN [Concomitant]
  5. PROMETHAZINE [Concomitant]
  6. CLOZAPINE [Suspect]
     Indication: SCHIZOPHRENIA
     Dosage: 500 MG, QD
     Route: 048
     Dates: start: 20080308, end: 20101231
  7. DIAZEPAM [Concomitant]
     Indication: DEPENDENCE
     Dosage: 30 MG, QD
     Route: 048

REACTIONS (4)
  - SYNCOPE [None]
  - HEPATITIS C VIRUS TEST POSITIVE [None]
  - CONFUSIONAL STATE [None]
  - OVERDOSE [None]
